FAERS Safety Report 12423235 (Version 1)
Quarter: 2016Q2

REPORT INFORMATION
  Report Type: Spontaneous
  Country: US (occurrence: None)
  Receive Date: 20160531
  Receipt Date: 20160531
  Transmission Date: 20160815
  Serious: Yes (Disabling)
  Sender: FDA-Public Use
  Company Number: None

PATIENT
  Age: 70 Year
  Sex: Male
  Weight: 81.65 kg

DRUGS (5)
  1. MULTI VIT. [Concomitant]
  2. IRBESARTAN, 150 MG ZHEJIANG HUAHAI [Suspect]
     Active Substance: IRBESARTAN
     Indication: HYPERTENSION
     Dosage: 90 TABLET(S) ONCE A DAY TAKEN BY MOUTH
     Route: 048
     Dates: start: 20160315, end: 20160420
  3. CPAP MACHINE [Concomitant]
  4. FISH OIL [Concomitant]
     Active Substance: FISH OIL
  5. ASPIRIN. [Concomitant]
     Active Substance: ASPIRIN

REACTIONS (7)
  - Abdominal pain upper [None]
  - Abdominal discomfort [None]
  - Product size issue [None]
  - Weight decreased [None]
  - Abdominal distension [None]
  - Product quality issue [None]
  - Pain in extremity [None]

NARRATIVE: CASE EVENT DATE: 20160315
